FAERS Safety Report 8979389 (Version 3)
Quarter: 2013Q1

REPORT INFORMATION
  Report Type: Spontaneous
  Country: DE (occurrence: JP)
  Receive Date: 20121221
  Receipt Date: 20130125
  Transmission Date: 20140127
  Serious: Yes (Death, Hospitalization, Disabling)
  Sender: FDA-Public Use
  Company Number: JP-FRI-1000041046

PATIENT
  Sex: Female

DRUGS (10)
  1. MEMANTINE [Suspect]
     Indication: DEMENTIA ALZHEIMER^S TYPE
     Dosage: 5 MG
     Route: 048
     Dates: start: 20121107, end: 20121120
  2. MEMANTINE [Suspect]
     Dosage: 10 MG
     Route: 048
     Dates: start: 20121121
  3. SYMBICORT [Concomitant]
     Dosage: 4 DF
     Route: 055
     Dates: start: 20101222
  4. MYSLEE [Concomitant]
     Dosage: 5 MG
     Route: 048
     Dates: start: 20110216
  5. SINGULAIR [Concomitant]
     Dosage: 10 MG
     Route: 048
     Dates: start: 20090304
  6. MUCODYNE [Concomitant]
     Dosage: 750 MG
     Route: 048
     Dates: start: 20101222
  7. ZANTAC [Concomitant]
     Dosage: 150 MG
     Route: 048
     Dates: start: 20101117
  8. DONEPEZIL [Concomitant]
     Route: 048
     Dates: start: 20120111
  9. ELCITONIN [Concomitant]
     Dosage: 20 IU
     Route: 030
     Dates: start: 20120412
  10. GASTER [Concomitant]

REACTIONS (6)
  - Weight increased [Unknown]
  - Oedema [Unknown]
  - Pleural effusion [Unknown]
  - Blood pressure increased [Unknown]
  - Renal failure [Fatal]
  - Cardiac failure [Not Recovered/Not Resolved]
